FAERS Safety Report 4418065-X (Version None)
Quarter: 2004Q3

REPORT INFORMATION
  Report Type: 
  Country: None (occurrence: None)
  Receive Date: 20040803
  Receipt Date: 20040720
  Transmission Date: 20050211
  Serious: Yes (Other)
  Sender: FDA-Public Use
  Company Number: US-JNJFOC-20040305970

PATIENT
  Age: 46 Year
  Sex: Female
  Weight: 58.9676 kg

DRUGS (29)
  1. REMICADE [Suspect]
     Indication: CROHN'S DISEASE
     Dosage: 5 MG/KG, INTRAVENOUS
     Route: 042
     Dates: start: 20000101
  2. VITAMIN B12 (INJECTION) CYANOCOBALAMIN [Concomitant]
  3. MAGNESIUM (INJECTION) MAGNESIUM [Concomitant]
  4. POTASSIUM (POTASSIUM) [Concomitant]
  5. FLAGYL [Concomitant]
  6. PREVACID [Concomitant]
  7. NEURONTIN [Concomitant]
  8. PREDNISONE [Concomitant]
  9. CALCIUM WITH VITAMIN D (CALCIUM WITH VITAMIN D) [Concomitant]
  10. FOLIC ACID [Concomitant]
  11. NULEV (ALL OTHER THERAPEUTIC PRODUCTS) [Concomitant]
  12. NUPERCAINAL (NUPERCAINAL) OINTMENT [Concomitant]
  13. DIPROLENE (BETRAMETHASONE DIPROPIONATE) GEL [Concomitant]
  14. ENBREL [Concomitant]
  15. ATIVAN [Concomitant]
  16. STOOL SOFTENER (DOCUSATE SODIUM) [Concomitant]
  17. PROGRAF [Concomitant]
  18. STEROIDS (CORTICOSTEROID NOS) [Concomitant]
  19. PENTASA [Concomitant]
  20. METRONIDAZOLE [Concomitant]
  21. PROGRAF (TACROLIMUS) TABLETS [Concomitant]
  22. ZOSTRIX (CAPSAICIN) CREAM [Concomitant]
  23. DURAGESIC [Concomitant]
  24. ENTOCORT (BUDESONIDE) [Concomitant]
  25. COUMADIN [Concomitant]
  26. ADVAIR (SERETIDE MITE) [Concomitant]
  27. SPIRIVA (ALL OTHER THERAPEUTIC PRODUCTS) [Concomitant]
  28. TRICHOR (TRICHLORMETHIAZIDE) [Concomitant]
  29. ZOCOR [Concomitant]

REACTIONS (17)
  - ANASTOMOTIC ULCER [None]
  - ARTHRALGIA [None]
  - ARTHRITIS [None]
  - BRONCHOSPASM [None]
  - DRUG HYPERSENSITIVITY [None]
  - ELECTROLYTE IMBALANCE [None]
  - INTESTINAL OBSTRUCTION [None]
  - LABORATORY TEST INTERFERENCE [None]
  - LUPUS-LIKE SYNDROME [None]
  - NEUROPATHIC PAIN [None]
  - NEUROPATHY PERIPHERAL [None]
  - PAIN [None]
  - PAIN EXACERBATED [None]
  - PAIN IN EXTREMITY [None]
  - PSEUDOPOLYP [None]
  - SHORT-BOWEL SYNDROME [None]
  - THROMBOSIS [None]
